FAERS Safety Report 5192888-4 (Version None)
Quarter: 2006Q4

REPORT INFORMATION
  Report Type: 
  Country: None (occurrence: None)
  Receive Date: 20061228
  Receipt Date: 20060201
  Transmission Date: 20070319
  Serious: No
  Sender: FDA-Public Use
  Company Number: US-GLAXOSMITHKLINE-A0591926A

PATIENT
  Age: 46 Year
  Sex: Female

DRUGS (2)
  1. FLONASE [Suspect]
     Indication: SINUS HEADACHE
     Dosage: 2SPR PER DAY
     Route: 045
     Dates: start: 20060101
  2. THYROID TAB [Concomitant]

REACTIONS (3)
  - HEADACHE [None]
  - NAUSEA [None]
  - PHARMACEUTICAL PRODUCT COMPLAINT [None]
